FAERS Safety Report 9332605 (Version 1)
Quarter: 2013Q2

REPORT INFORMATION
  Report Type: Spontaneous
  Country: GB (occurrence: None)
  Receive Date: 20130603
  Receipt Date: 20130603
  Transmission Date: 20140414
  Serious: Yes (Other)
  Sender: FDA-Public Use
  Company Number: 2013160573

PATIENT
  Age: 57 Year
  Sex: Female
  Weight: 104 kg

DRUGS (9)
  1. FRAGMIN (DALTEPARIN SODIUM) SOLUTION FOR INJECTION [Suspect]
     Indication: THROMBOSIS
     Dosage: 1X/DAY
     Dates: start: 20130314, end: 20130325
  2. BYETTA (EXENATIDE) [Concomitant]
  3. LANTUS (INSULIN GLARGINE) [Concomitant]
  4. RAMIPRIL (RAMIPRIL) [Concomitant]
  5. METFORMIN (METFORMIN) [Concomitant]
  6. GLIMEPIRIDE (GLIMEPIRIDE) [Concomitant]
  7. TRAMADOL (TRAMADOL) [Concomitant]
  8. PARACETAMOL (PARACETAMOL) [Concomitant]
  9. EZETIMIBE (EZETIMIBE) (TABLET) [Concomitant]

REACTIONS (6)
  - Irritability [None]
  - Tremor [None]
  - Pruritus generalised [None]
  - Restlessness [None]
  - Formication [None]
  - Insomnia [None]
